FAERS Safety Report 9521054 (Version 2)
Quarter: 2013Q4

REPORT INFORMATION
  Report Type: Spontaneous
  Country: US (occurrence: US)
  Receive Date: 20130913
  Receipt Date: 20131029
  Transmission Date: 20140711
  Serious: Yes (Other)
  Sender: FDA-Public Use
  Company Number: US-ASTRAZENECA-2013SE67970

PATIENT
  Age: 1016 Month
  Sex: Female
  Weight: 45.4 kg

DRUGS (2)
  1. SYMBICORT [Suspect]
     Indication: EMPHYSEMA
     Dosage: 160/4.5 MCG 2 PUFFS BID
     Route: 055
  2. EYE DROPS [Concomitant]
     Dates: start: 20130905

REACTIONS (4)
  - Cataract [Unknown]
  - Dyspnoea [Unknown]
  - Eye disorder [Unknown]
  - Device failure [Unknown]
